FAERS Safety Report 5269358-8 (Version None)
Quarter: 2007Q1

REPORT INFORMATION
  Report Type: 
  Country: None (occurrence: None)
  Receive Date: 20070319
  Receipt Date: 20070307
  Transmission Date: 20070707
  Serious: Yes (Other)
  Sender: FDA-Public Use
  Company Number: US-PFIZER INC-2007018458

PATIENT
  Sex: Female
  Weight: 70.8 kg

DRUGS (14)
  1. CHANTIX [Suspect]
     Indication: SMOKING CESSATION THERAPY
  2. GLIPIZIDE [Suspect]
     Indication: DIABETES MELLITUS
  3. VASOTEC [Concomitant]
  4. THEO-DUR [Concomitant]
  5. PLAVIX [Concomitant]
  6. PENTOXYPHYLLINE [Concomitant]
  7. ASPIRIN [Concomitant]
  8. WELLBUTRIN [Concomitant]
  9. GLUCOPHAGE [Concomitant]
  10. ZYRTEC [Concomitant]
  11. ZOCOR [Concomitant]
  12. ATROVENT [Concomitant]
  13. ALBUTEROL [Concomitant]
  14. OXYGEN [Concomitant]

REACTIONS (2)
  - BLOOD GLUCOSE INCREASED [None]
  - DYSPNOEA [None]
